FAERS Safety Report 11235658 (Version 2)
Quarter: 2015Q3

REPORT INFORMATION
  Report Type: Spontaneous
  Country: US (occurrence: US)
  Receive Date: 20150702
  Receipt Date: 20150706
  Transmission Date: 20151125
  Serious: No
  Sender: FDA-Public Use
  Company Number: PHEH2015US012753

PATIENT
  Sex: Female

DRUGS (1)
  1. GLEEVEC [Suspect]
     Active Substance: IMATINIB MESYLATE
     Indication: CHRONIC MYELOID LEUKAEMIA
     Route: 065

REACTIONS (13)
  - Arthralgia [Unknown]
  - Pigmentation disorder [Unknown]
  - Eye haemorrhage [Unknown]
  - Oedema [Unknown]
  - Fatigue [Unknown]
  - Diarrhoea [Unknown]
  - Constipation [Unknown]
  - Migraine [Unknown]
  - Nausea [Unknown]
  - Myalgia [Unknown]
  - Weight increased [Unknown]
  - Dizziness [Unknown]
  - Anaemia [Unknown]
